FAERS Safety Report 22072456 (Version 2)
Quarter: 2023Q2

REPORT INFORMATION
  Report Type: Report from Study
  Country: MX (occurrence: MX)
  Receive Date: 20230308
  Receipt Date: 20230405
  Transmission Date: 20230722
  Serious: Yes (Other)
  Sender: FDA-Public Use
  Company Number: MX-002147023-NVSC2022MX235711

PATIENT
  Sex: Male

DRUGS (1)
  1. TASIGNA [Suspect]
     Active Substance: NILOTINIB
     Indication: Chronic myeloid leukaemia
     Dosage: UNK
     Route: 048

REACTIONS (13)
  - Platelet count decreased [Unknown]
  - Haemorrhage [Unknown]
  - White blood cell count increased [Unknown]
  - Vision blurred [Unknown]
  - Headache [Unknown]
  - Dizziness [Unknown]
  - Decreased appetite [Unknown]
  - Fatigue [Unknown]
  - Malaise [Unknown]
  - Eosinophil count abnormal [Unknown]
  - Formication [Unknown]
  - Bone pain [Unknown]
  - Drug resistance [Unknown]
